FAERS Safety Report 10083985 (Version 2)
Quarter: 2014Q2

REPORT INFORMATION
  Report Type: Spontaneous
  Country: GB (occurrence: None)
  Receive Date: 20140415
  Receipt Date: 20140422
  Transmission Date: 20141212
  Serious: Yes (Other)
  Sender: FDA-Public Use
  Company Number: AUR-APL-2014-04242

PATIENT
  Age: 77 Year
  Sex: Female

DRUGS (3)
  1. RAMIPRIL [Suspect]
     Indication: PRODUCT USED FOR UNKNOWN INDICATION
     Dates: start: 20140317, end: 20140322
  2. AMLODIPINE  (AMLODIPINE) [Concomitant]
  3. VENLAFAXINE (VENLAFAXINE) [Concomitant]

REACTIONS (1)
  - Swollen tongue [None]
